FAERS Safety Report 22192440 (Version 1)
Quarter: 2023Q2

REPORT INFORMATION
  Report Type: Spontaneous
  Country: HU (occurrence: HU)
  Receive Date: 20230410
  Receipt Date: 20230410
  Transmission Date: 20230722
  Serious: Yes (Hospitalization)
  Sender: FDA-Public Use
  Company Number: HU-Orion Corporation ORION PHARMA-ALPR2023-0002

PATIENT
  Age: 92 Year
  Sex: Female

DRUGS (16)
  1. ALPRAZOLAM [Suspect]
     Active Substance: ALPRAZOLAM
     Indication: Hypertension
     Dosage: 0.25 IN THE AFTERNOON/0.5 MG IN THE EVENING
     Route: 065
  2. WARFARIN [Suspect]
     Active Substance: WARFARIN
     Indication: Hypertension
     Dosage: ACCORDING TO INR
     Route: 065
  3. BRIMONIDINE [Concomitant]
     Active Substance: BRIMONIDINE TARTRATE
     Dosage: 10 MILLIGRAM PER MILLILITRE
     Route: 065
  4. RILMENIDINE [Concomitant]
     Active Substance: RILMENIDINE
     Dosage: 0.5 MG IN THE MORNING, EVENING AND 1 MG AT NOON
     Route: 065
  5. RILMENIDINE [Concomitant]
     Active Substance: RILMENIDINE
     Dosage: TWICE DAILY DOSING TO THREE TIMES A DAY
     Route: 065
  6. METOPROLOL [Concomitant]
     Active Substance: METOPROLOL
     Dosage: 50 MILLIGRAM, QD
     Route: 065
  7. LATANOPROST [Concomitant]
     Active Substance: LATANOPROST
     Dosage: 0.05 MILLIGRAM PER MILLILITRE
     Route: 065
  8. TIMOLOL [Concomitant]
     Active Substance: TIMOLOL
     Dosage: 0.5 PERCENT
     Route: 065
  9. CAPTOPRIL [Concomitant]
     Active Substance: CAPTOPRIL
     Dosage: 25 MILLIGRAM
     Route: 065
  10. HYDROCHLOROTHIAZIDE\LOSARTAN [Concomitant]
     Active Substance: HYDROCHLOROTHIAZIDE\LOSARTAN
     Dosage: (50/12,5 MG) IN THE MORNING AND AT NOON
     Route: 065
  11. BRINZOLAMIDE [Concomitant]
     Active Substance: BRINZOLAMIDE
     Dosage: 2 MILLIGRAM PER MILLILITRE
     Route: 065
  12. GLICLAZIDE [Concomitant]
     Active Substance: GLICLAZIDE
     Indication: Diabetes mellitus
     Dosage: 30 MILLIGRAM, QD IN THE MORNING
     Route: 065
  13. LERCANIDIPINE [Concomitant]
     Active Substance: LERCANIDIPINE
     Dosage: 10 MILLIGRAM, QD AT NOON
     Route: 065
  14. LERCANIDIPINE [Concomitant]
     Active Substance: LERCANIDIPINE
     Dosage: SWITCHED FROM EVENING TO NOON
     Route: 065
  15. POTASSIUM [Concomitant]
     Active Substance: POTASSIUM
     Dosage: 1 GRAM, QOD, EVERY OTHER DAY
     Route: 065
  16. BISOPROLOL [Concomitant]
     Active Substance: BISOPROLOL
     Dosage: 5 MILLIGRAM, QD IN THE MORNING
     Route: 065

REACTIONS (2)
  - Injury [Unknown]
  - Product use in unapproved indication [Unknown]
